FAERS Safety Report 10949653 (Version 4)
Quarter: 2015Q2

REPORT INFORMATION
  Report Type: Report from Study
  Country: PT (occurrence: PT)
  Receive Date: 20150324
  Receipt Date: 20150528
  Transmission Date: 20150821
  Serious: Yes (Other)
  Sender: FDA-Public Use
  Company Number: PT-JNJFOC-20140816111

PATIENT
  Age: 35 Year
  Sex: Female

DRUGS (3)
  1. SIMPONI [Suspect]
     Active Substance: GOLIMUMAB
     Indication: ANKYLOSING SPONDYLITIS
     Route: 058
     Dates: start: 20140612
  2. SIMPONI [Suspect]
     Active Substance: GOLIMUMAB
     Indication: ANKYLOSING SPONDYLITIS
     Route: 058
     Dates: start: 20150409
  3. LEVOTHYROXINE [Concomitant]
     Active Substance: LEVOTHYROXINE
     Indication: HYPOTHYROIDISM
     Route: 065

REACTIONS (6)
  - Varicose vein [Unknown]
  - Pain [Unknown]
  - Back pain [Unknown]
  - Oropharyngeal pain [Recovered/Resolved]
  - Vulvovaginal candidiasis [Recovered/Resolved]
  - Drug ineffective [Unknown]

NARRATIVE: CASE EVENT DATE: 20140721
